FAERS Safety Report 17049763 (Version 1)
Quarter: 2019Q4

REPORT INFORMATION
  Report Type: Spontaneous
  Country: SE (occurrence: SE)
  Receive Date: 20191119
  Receipt Date: 20191119
  Transmission Date: 20200122
  Serious: Yes (Hospitalization)
  Sender: FDA-Public Use
  Company Number: SE-MYLANLABS-2019M1110825

PATIENT
  Age: 30 Year
  Sex: Female

DRUGS (3)
  1. FLUANXOL                           /00109702/ [Concomitant]
     Active Substance: FLUPENTIXOL
     Dosage: UNK
  2. LERGIGAN (PROMETHAZINE HYDROCHLORIDE) [Suspect]
     Active Substance: PROMETHAZINE HYDROCHLORIDE
     Indication: PRODUCT USED FOR UNKNOWN INDICATION
     Dosage: UNK
     Route: 048
     Dates: start: 20190309, end: 20190309
  3. FLUOXETINE [Concomitant]
     Active Substance: FLUOXETINE HYDROCHLORIDE
     Dosage: UNK

REACTIONS (10)
  - Intentional self-injury [Unknown]
  - Hyperreflexia [Unknown]
  - Muscle rigidity [Unknown]
  - Eye movement disorder [Unknown]
  - Blood sodium increased [Unknown]
  - Tremor [Unknown]
  - Disorientation [Unknown]
  - Mydriasis [Unknown]
  - Intentional overdose [Unknown]
  - Depressed level of consciousness [Unknown]

NARRATIVE: CASE EVENT DATE: 20190309
